FAERS Safety Report 4450787-7 (Version None)
Quarter: 2004Q3

REPORT INFORMATION
  Report Type: 
  Country: None (occurrence: None)
  Receive Date: 20040913
  Receipt Date: 20040524
  Transmission Date: 20050211
  Serious: No
  Sender: FDA-Public Use
  Company Number: 2004-BP-04170BP(0)

PATIENT
  Age: 69 Year
  Sex: Female

DRUGS (7)
  1. SPIRIVA [Suspect]
     Indication: DYSPNOEA
     Dosage: 18 MCG (18 MCG,18 MCG ONCE DAILY), IH
     Dates: start: 20040513, end: 20040524
  2. AMBIEN [Concomitant]
  3. CLONAZEPAM [Concomitant]
  4. MIRAPEX [Concomitant]
  5. PROZAC [Concomitant]
  6. REQUIP [Concomitant]
  7. ACETYLSALICYLIC ACID SRT [Concomitant]

REACTIONS (3)
  - ADVERSE DRUG REACTION [None]
  - NAUSEA [None]
  - RETCHING [None]
